FAERS Safety Report 5205832-8 (Version None)
Quarter: 2007Q1

REPORT INFORMATION
  Report Type: 
  Country: None (occurrence: None)
  Receive Date: 20070105
  Receipt Date: 20070105
  Transmission Date: 20070707
  Serious: Yes (Hospitalization)
  Sender: FDA-Public Use
  Company Number: None

PATIENT
  Age: 48 Year
  Sex: Male
  Weight: 106.1 kg

DRUGS (5)
  1. METOPROLOL TARTRATE [Suspect]
     Indication: CORONARY ARTERY DISEASE
     Dosage: 100MG BID
  2. METOPROLOL TARTRATE [Suspect]
     Indication: HYPERTENSION
     Dosage: 100MG BID
  3. TERAZOSIN HCL [Suspect]
     Indication: BENIGN PROSTATIC HYPERPLASIA
     Dosage: 15MG HS
  4. TERAZOSIN HCL [Suspect]
     Indication: CORONARY ARTERY DISEASE
     Dosage: 15MG HS
  5. TERAZOSIN HCL [Suspect]
     Indication: HYPERTENSION
     Dosage: 15MG HS

REACTIONS (10)
  - AMNESIA [None]
  - BRADYCARDIA [None]
  - DEPRESSED MOOD [None]
  - DIARRHOEA [None]
  - ELECTROLYTE IMBALANCE [None]
  - FALL [None]
  - FEELING ABNORMAL [None]
  - HEAD INJURY [None]
  - SYNCOPE [None]
  - TACHYCARDIA [None]
